FAERS Safety Report 23085956 (Version 1)
Quarter: 2023Q4

REPORT INFORMATION
  Report Type: Report from Study
  Country: US (occurrence: US)
  Receive Date: 20231019
  Receipt Date: 20231019
  Transmission Date: 20240109
  Serious: Yes (Other)
  Sender: FDA-Public Use
  Company Number: US-JAZZ PHARMACEUTICALS-2023-US-016607

PATIENT
  Sex: Female

DRUGS (1)
  1. XYREM [Suspect]
     Active Substance: SODIUM OXYBATE
     Indication: Hypersomnia
     Dosage: UNK

REACTIONS (11)
  - Impaired gastric emptying [Unknown]
  - COVID-19 pneumonia [Unknown]
  - Pneumonia [Unknown]
  - Pulmonary mass [Unknown]
  - Post-acute COVID-19 syndrome [Unknown]
  - Obesity [Unknown]
  - Depression [Unknown]
  - Lymphadenopathy [Unknown]
  - Hepatic steatosis [Unknown]
  - Cholelithiasis [Unknown]
  - Off label use [Unknown]
